FAERS Safety Report 13455747 (Version 1)
Quarter: 2017Q2

REPORT INFORMATION
  Report Type: Spontaneous
  Country: US (occurrence: US)
  Receive Date: 20170418
  Receipt Date: 20170418
  Transmission Date: 20170830
  Serious: No
  Sender: FDA-Public Use
  Company Number: US-BAYER-2017-065136

PATIENT
  Age: 76 Year
  Sex: Female
  Weight: 77 kg

DRUGS (4)
  1. ALEVE [Suspect]
     Active Substance: NAPROXEN SODIUM
     Indication: PAIN
     Dosage: 2 DF, UNK
     Route: 048
  2. PAIN STOPPER EXTRA [Suspect]
     Active Substance: ACETAMINOPHEN\ASPIRIN\CAFFEINE\SALICYLAMIDE
     Indication: PAIN
     Route: 048
  3. ALEVE PM [Suspect]
     Active Substance: DIPHENHYDRAMINE HYDROCHLORIDE\NAPROXEN SODIUM
     Indication: PAIN
     Dosage: 2 DF, HS
     Route: 048
  4. HYDROCODONE [HYDROCODONE] [Concomitant]
     Active Substance: HYDROCODONE
     Dosage: UNK

REACTIONS (4)
  - Circumstance or information capable of leading to medication error [Unknown]
  - Alopecia [Not Recovered/Not Resolved]
  - Drug ineffective [Unknown]
  - Product use issue [Unknown]

NARRATIVE: CASE EVENT DATE: 201701
